FAERS Safety Report 5155051-9 (Version None)
Quarter: 2006Q4

REPORT INFORMATION
  Report Type: 
  Country: None (occurrence: None)
  Receive Date: 20061121
  Receipt Date: 20061027
  Transmission Date: 20070319
  Serious: Yes (Death, Hospitalization, Other)
  Sender: FDA-Public Use
  Company Number: JP-ELI_LILLY_AND_COMPANY-JP200610005263

PATIENT
  Age: 68 Year
  Sex: Female

DRUGS (2)
  1. GEMZAR [Suspect]
     Indication: ADENOCARCINOMA
     Dosage: 1000 MG/M2, OTHER
     Route: 042
     Dates: start: 20010904, end: 20020514
  2. GEMZAR [Suspect]
     Dosage: 1000 MG/M2, OTHER
     Route: 042
     Dates: start: 20020813, end: 20030428

REACTIONS (8)
  - MALIGNANT ASCITES [None]
  - MALIGNANT NEOPLASM PROGRESSION [None]
  - METASTASES TO BONE [None]
  - METASTASES TO LUNG [None]
  - NECK PAIN [None]
  - NEUTROPHIL COUNT DECREASED [None]
  - PLATELET COUNT DECREASED [None]
  - WHITE BLOOD CELL COUNT DECREASED [None]
